FAERS Safety Report 5608736-1 (Version None)
Quarter: 2008Q1

REPORT INFORMATION
  Report Type: 
  Country: None (occurrence: None)
  Receive Date: 20080128
  Receipt Date: 20080128
  Transmission Date: 20080703
  Serious: Yes (Hospitalization, Other)
  Sender: FDA-Public Use
  Company Number: None

PATIENT
  Age: 76 Year
  Sex: Male

DRUGS (2)
  1. BUPIVACAINE [Suspect]
     Indication: ARTHRALGIA
     Dosage: 1 TIME INTRA-ARTICULAR
     Route: 014
     Dates: start: 20071217
  2. KENALOG-40 [Suspect]

REACTIONS (1)
  - STAPHYLOCOCCAL ABSCESS [None]
